FAERS Safety Report 9301165 (Version 1)
Quarter: 2013Q2

REPORT INFORMATION
  Report Type: Spontaneous
  Country: US (occurrence: US)
  Receive Date: 20130521
  Receipt Date: 20130521
  Transmission Date: 20140414
  Serious: No
  Sender: FDA-Public Use
  Company Number: US-BRISTOL-MYERS SQUIBB COMPANY-17064189

PATIENT
  Age: 62 Year
  Sex: Female

DRUGS (7)
  1. BARACLUDE [Suspect]
     Indication: IMMUNOLOGY TEST ABNORMAL
     Dosage: LAST DOSE :17OCT12, STOPPED ON 18OCT12 AND RESTARTED ON 05NOV12
     Route: 048
  2. ASPIRIN [Concomitant]
  3. CITALOPRAM [Concomitant]
  4. CLOBETASOL [Concomitant]
     Dosage: AS NEEDED ON WEEKENDS
  5. SIMVASTATIN [Concomitant]
  6. NITROGLYCERIN [Concomitant]
     Route: 060
  7. ISOSORBIDE MONONITRATE [Concomitant]

REACTIONS (2)
  - Psoriasis [Not Recovered/Not Resolved]
  - Heart rate increased [Recovered/Resolved]
